FAERS Safety Report 13738994 (Version 2)
Quarter: 2018Q2

REPORT INFORMATION
  Report Type: Spontaneous
  Country: US (occurrence: US)
  Receive Date: 20170710
  Receipt Date: 20180627
  Transmission Date: 20180711
  Serious: Yes (Other)
  Sender: FDA-Public Use
  Company Number: US-SAOL THERAPEUTICS-2017SAO00828

PATIENT
  Sex: Female
  Weight: 97.51 kg

DRUGS (1)
  1. BACLOFEN. [Suspect]
     Active Substance: BACLOFEN
     Dosage: 30 ?G, \DAY
     Route: 037

REACTIONS (2)
  - Implant site extravasation [Unknown]
  - Device damage [Not Recovered/Not Resolved]
